FAERS Safety Report 10682923 (Version 2)
Quarter: 2014Q4

REPORT INFORMATION
  Report Type: Spontaneous
  Country: CA (occurrence: CA)
  Receive Date: 20141230
  Receipt Date: 20141230
  Transmission Date: 20150529
  Serious: Yes (Hospitalization)
  Sender: FDA-Public Use
  Company Number: CA-BAXTER-2014BAX069680

PATIENT
  Age: 39 Year
  Sex: Male

DRUGS (2)
  1. 0.9% SODIUM CHLORIDE INJECTION [Suspect]
     Active Substance: SODIUM CHLORIDE
     Indication: RENAL FAILURE
     Route: 065
  2. K2 CONCENTRATE [Suspect]
     Active Substance: POTASSIUM
     Indication: RENAL FAILURE
     Route: 065

REACTIONS (3)
  - Vomiting [Recovered/Resolved with Sequelae]
  - Malnutrition [Recovered/Resolved with Sequelae]
  - Gastrointestinal disorder [Not Recovered/Not Resolved]

NARRATIVE: CASE EVENT DATE: 20141023
